FAERS Safety Report 7920540 (Version 12)
Quarter: 2013Q2

REPORT INFORMATION
  Report Type: Spontaneous
  Country: US (occurrence: US)
  Receive Date: 20110429
  Receipt Date: 20130418
  Transmission Date: 20140414
  Serious: Yes (Hospitalization, Other)
  Sender: FDA-Public Use
  Company Number: PHEH2011US00469

PATIENT
  Age: 49 Year
  Sex: Male

DRUGS (8)
  1. ZOMETA [Suspect]
     Dosage: 4 MG, QMO
     Route: 042
     Dates: start: 2002, end: 2004
  2. AREDIA [Suspect]
     Dosage: 90 MG, QMO
     Route: 042
     Dates: start: 1999
  3. VICODIN [Concomitant]
  4. DECADRON [Concomitant]
  5. ZANTAC [Concomitant]
  6. PEPCID [Concomitant]
  7. NEURONTIN [Concomitant]
  8. HYTRIN [Concomitant]

REACTIONS (97)
  - Osteonecrosis of jaw [Unknown]
  - Infection [Unknown]
  - Deformity [Unknown]
  - Injury [Unknown]
  - Emotional distress [Unknown]
  - Pain [Unknown]
  - Physical disability [Unknown]
  - Anxiety [Unknown]
  - Osteoradionecrosis [Unknown]
  - Swelling [Unknown]
  - Exposed bone in jaw [Unknown]
  - Impaired healing [Unknown]
  - Tooth abscess [Unknown]
  - Osteomyelitis [Unknown]
  - Pain in jaw [Unknown]
  - Soft tissue mass [Unknown]
  - Gingival inflammation [Unknown]
  - Hypoaesthesia oral [Unknown]
  - Wound secretion [Unknown]
  - Wound [Unknown]
  - Bone lesion [Unknown]
  - Oral cavity fistula [Unknown]
  - Tooth loss [Unknown]
  - Post procedural swelling [Unknown]
  - Stitch abscess [Unknown]
  - Abscess jaw [Unknown]
  - Swelling face [Unknown]
  - Bacterial infection [Unknown]
  - Sensitivity of teeth [Unknown]
  - Osteosclerosis [Unknown]
  - Excessive granulation tissue [Unknown]
  - Bone erosion [Unknown]
  - Sepsis [Unknown]
  - Jaw disorder [Unknown]
  - Toothache [Unknown]
  - Joint crepitation [Unknown]
  - Osteitis [Unknown]
  - Ulcer [Unknown]
  - Actinomycosis [Unknown]
  - Fungal infection [Unknown]
  - Fatigue [Unknown]
  - Papule [Unknown]
  - Hypothyroidism [Unknown]
  - Normochromic normocytic anaemia [Unknown]
  - Lymphoid tissue hyperplasia [Unknown]
  - Basedow^s disease [Unknown]
  - Renal cyst [Unknown]
  - Candida infection [Unknown]
  - Splenic granuloma [Unknown]
  - Splenic calcification [Unknown]
  - Osteoarthritis [Unknown]
  - Atrial fibrillation [Unknown]
  - Haemoptysis [Not Recovered/Not Resolved]
  - Gastrooesophageal reflux disease [Unknown]
  - Hypertrophy [Unknown]
  - Rib fracture [Unknown]
  - Hepatic steatosis [Unknown]
  - Memory impairment [Unknown]
  - Osteopenia [Unknown]
  - Hyperkeratosis [Unknown]
  - Rhinorrhoea [Unknown]
  - Fall [Unknown]
  - Arthralgia [Unknown]
  - Cellulitis [Unknown]
  - Carotid artery occlusion [Unknown]
  - Carotid artery stenosis [Unknown]
  - Cataract [Unknown]
  - Atelectasis [Unknown]
  - Dysphagia [Unknown]
  - Onychomycosis [Unknown]
  - Open angle glaucoma [Unknown]
  - Benign prostatic hyperplasia [Unknown]
  - Infected bites [Unknown]
  - Thyroiditis [Unknown]
  - Osteonecrosis [Unknown]
  - Bradycardia [Unknown]
  - Animal bite [Unknown]
  - Leukocytosis [Unknown]
  - Dysarthria [Unknown]
  - Cyst [Unknown]
  - Lower urinary tract symptoms [Unknown]
  - Bronchitis [Unknown]
  - Conjunctivitis [Unknown]
  - Viral upper respiratory tract infection [Unknown]
  - Hyperthyroidism [Unknown]
  - Sleep disorder [Unknown]
  - Depression [Unknown]
  - Syncope [Unknown]
  - Sinus bradycardia [Unknown]
  - Nail dystrophy [Unknown]
  - Bone swelling [Unknown]
  - Hypermetropia [Unknown]
  - Astigmatism [Unknown]
  - Presbyopia [Unknown]
  - Malaise [Unknown]
  - Dyspnoea [Unknown]
  - Vitamin D deficiency [Unknown]
